FAERS Safety Report 9706617 (Version 2)
Quarter: 2013Q4

REPORT INFORMATION
  Report Type: Spontaneous
  Country: FR (occurrence: FR)
  Receive Date: 20131125
  Receipt Date: 20131128
  Transmission Date: 20140711
  Serious: Yes (Hospitalization)
  Sender: FDA-Public Use
  Company Number: FR-ROCHE-1305723

PATIENT
  Age: 77 Year
  Sex: Female

DRUGS (6)
  1. APRANAX [Suspect]
     Indication: ARTHRALGIA
     Route: 048
     Dates: start: 20130326, end: 20130402
  2. ALDACTONE (FRANCE) [Suspect]
     Indication: OEDEMA PERIPHERAL
     Route: 048
     Dates: start: 201310, end: 20131023
  3. DAFALGAN CODEINE [Suspect]
     Indication: PRODUCT USED FOR UNKNOWN INDICATION
     Route: 048
     Dates: end: 20131023
  4. DYNAMISAN (FRANCE) [Suspect]
     Indication: PRODUCT USED FOR UNKNOWN INDICATION
     Route: 048
     Dates: start: 201310, end: 20131023
  5. BURINEX [Suspect]
     Indication: OEDEMA PERIPHERAL
     Route: 048
     Dates: start: 20130326, end: 20130409
  6. REMICADE [Suspect]
     Indication: PEMPHIGOID
     Route: 042
     Dates: end: 20130911

REACTIONS (1)
  - Hepatitis [Not Recovered/Not Resolved]
